FAERS Safety Report 4552661-4 (Version None)
Quarter: 2005Q1

REPORT INFORMATION
  Report Type: 
  Country: None (occurrence: None)
  Receive Date: 20050114
  Receipt Date: 20050107
  Transmission Date: 20050727
  Serious: Yes (Hospitalization)
  Sender: FDA-Public Use
  Company Number: PHBS2005JP00580

PATIENT
  Age: 48 Year
  Sex: Female

DRUGS (2)
  1. FASTIC [Suspect]
     Indication: DIABETES MELLITUS
     Dosage: 270 MG/DAY
     Route: 048
     Dates: start: 20041124, end: 20041223
  2. BASEN [Concomitant]
     Indication: DIABETES MELLITUS
     Dosage: 0.9 MG/DAY
     Dates: start: 20040811

REACTIONS (3)
  - AMNESIA [None]
  - CONVULSION [None]
  - EPILEPSY [None]
